FAERS Safety Report 13834025 (Version 1)
Quarter: 2017Q3

REPORT INFORMATION
  Report Type: Spontaneous
  Country: US (occurrence: US)
  Receive Date: 20170804
  Receipt Date: 20170804
  Transmission Date: 20171127
  Serious: Yes (Other)
  Sender: FDA-Public Use
  Company Number: US-ALVOGEN-2017-ALVOGEN-092904

PATIENT
  Sex: Female

DRUGS (15)
  1. FENTANYL. [Suspect]
     Active Substance: FENTANYL
     Indication: PRODUCT USED FOR UNKNOWN INDICATION
  2. FUROSEMIDE. [Suspect]
     Active Substance: FUROSEMIDE
     Indication: PRODUCT USED FOR UNKNOWN INDICATION
  3. PROMETHAZINE [Suspect]
     Active Substance: PROMETHAZINE\PROMETHAZINE HYDROCHLORIDE
     Indication: PRODUCT USED FOR UNKNOWN INDICATION
  4. LINEZOLID. [Suspect]
     Active Substance: LINEZOLID
     Indication: PRODUCT USED FOR UNKNOWN INDICATION
  5. LORAZEPAM. [Suspect]
     Active Substance: LORAZEPAM
     Indication: PRODUCT USED FOR UNKNOWN INDICATION
  6. SULFAMETHOXAZOLE/TRIMETHOPRIM [Suspect]
     Active Substance: SULFAMETHOXAZOLE\TRIMETHOPRIM
     Indication: PRODUCT USED FOR UNKNOWN INDICATION
  7. FLECTOR [Suspect]
     Active Substance: DICLOFENAC EPOLAMINE
     Indication: PRODUCT USED FOR UNKNOWN INDICATION
  8. LEVOFLOXACIN. [Suspect]
     Active Substance: LEVOFLOXACIN
     Indication: PRODUCT USED FOR UNKNOWN INDICATION
  9. DEXAMETHASONE/TOBRAMYCIN SULFATE [Suspect]
     Active Substance: DEXAMETHASONE\TOBRAMYCIN
     Indication: PRODUCT USED FOR UNKNOWN INDICATION
  10. METAXALONE. [Suspect]
     Active Substance: METAXALONE
     Indication: PRODUCT USED FOR UNKNOWN INDICATION
  11. SPIRONOLACTONE. [Suspect]
     Active Substance: SPIRONOLACTONE
     Indication: PRODUCT USED FOR UNKNOWN INDICATION
  12. CLINDAMYCIN. [Suspect]
     Active Substance: CLINDAMYCIN
     Indication: PRODUCT USED FOR UNKNOWN INDICATION
  13. HYDROMORPHONE [Suspect]
     Active Substance: HYDROMORPHONE
     Indication: PRODUCT USED FOR UNKNOWN INDICATION
  14. MEDROL [Suspect]
     Active Substance: METHYLPREDNISOLONE
     Indication: PRODUCT USED FOR UNKNOWN INDICATION
  15. POTASSIUM CHLORIDE ER [Suspect]
     Active Substance: POTASSIUM CHLORIDE
     Indication: PRODUCT USED FOR UNKNOWN INDICATION

REACTIONS (13)
  - Depression [Unknown]
  - Anxiety [Unknown]
  - Pain in extremity [Unknown]
  - Musculoskeletal stiffness [Unknown]
  - Nodal osteoarthritis [Unknown]
  - Oedema peripheral [Unknown]
  - Hypokinesia [Unknown]
  - Hypertension [Unknown]
  - Tenosynovitis [Unknown]
  - Crepitations [Unknown]
  - Rheumatoid arthritis [Unknown]
  - Arthralgia [Unknown]
  - Back pain [Unknown]
